FAERS Safety Report 10976984 (Version 2)
Quarter: 2015Q4

REPORT INFORMATION
  Report Type: Spontaneous
  Country: IT (occurrence: IT)
  Receive Date: 20150402
  Receipt Date: 20151227
  Transmission Date: 20160304
  Serious: Yes (Hospitalization, Other)
  Sender: FDA-Public Use
  Company Number: IT-CIPLA LTD.-2015IT02697

PATIENT

DRUGS (1)
  1. CETIRIZINE [Suspect]
     Active Substance: CETIRIZINE HYDROCHLORIDE
     Indication: RHINITIS ALLERGIC
     Dosage: 10 MG, QD
     Route: 048

REACTIONS (3)
  - Autoantibody positive [Recovered/Resolved]
  - Cholestasis [Recovered/Resolved]
  - Hepatitis acute [Recovered/Resolved]
